FAERS Safety Report 8928698 (Version 2)
Quarter: 2013Q1

REPORT INFORMATION
  Report Type: Not Available
  Country: JP (occurrence: JP)
  Receive Date: 20121128
  Receipt Date: 20130123
  Transmission Date: 20140127
  Serious: Yes (Hospitalization, Disabling)
  Sender: FDA-Public Use
  Company Number: JP-ASTELLAS-2012JP010541

PATIENT
  Age: 61 None
  Sex: Female
  Weight: 30 kg

DRUGS (20)
  1. PROGRAF [Suspect]
     Indication: IMMUNOSUPPRESSANT DRUG THERAPY
     Dosage: 0.8 MG, BID
     Route: 048
     Dates: start: 20050630
  2. CELLCEPT                           /01275102/ [Suspect]
     Indication: IMMUNOSUPPRESSANT DRUG THERAPY
     Dosage: 500 MG, BID
     Route: 048
     Dates: start: 20050630
  3. GABAPEN [Suspect]
     Indication: EPILEPSY
     Dosage: 200 MG, BID
     Route: 048
     Dates: start: 20101027, end: 20110516
  4. GABAPEN [Suspect]
     Indication: NEURALGIA
  5. THYRADIN S [Suspect]
     Indication: HYPOTHYROIDISM
     Dosage: 50 UG, UID/QD
     Route: 048
  6. URSO [Suspect]
     Indication: LIVER DISORDER
     Dosage: 100 MG, TID
     Route: 048
     Dates: end: 20120507
  7. TAKEPRON [Suspect]
     Indication: GASTRIC ULCER
     Dosage: 30 MG, UID/QD
     Route: 048
     Dates: start: 20070621
  8. TAKEPRON [Suspect]
     Indication: DUODENAL ULCER
  9. TAKEPRON [Suspect]
     Indication: GASTROOESOPHAGEAL REFLUX DISEASE
  10. NORVASC [Suspect]
     Indication: HYPERTENSION
     Dosage: 5 MG, BID
     Route: 048
     Dates: end: 20110708
  11. BIOLACTIS [Suspect]
     Indication: DIARRHOEA
     Dosage: 1 G, TID
     Route: 048
     Dates: start: 20071124
  12. BLOPRESS [Suspect]
     Indication: HYPERTENSION
     Dosage: 2 MG, UID/QD
     Route: 048
     Dates: start: 20100728
  13. LASIX                              /00032601/ [Suspect]
     Indication: OEDEMA DUE TO RENAL DISEASE
     Dosage: 40 MG, TID
     Route: 048
     Dates: start: 20090803, end: 20110525
  14. ALLEGRA [Suspect]
     Indication: PRURITUS
     Dosage: 60 MG, BID
     Route: 048
     Dates: start: 20101027, end: 20120511
  15. CALTAN [Suspect]
     Indication: HYPERPHOSPHATAEMIA
     Dosage: 1000 MG, TID
     Route: 048
     Dates: start: 20100901, end: 20110525
  16. VALTREX [Suspect]
     Indication: HERPES ZOSTER
     Dosage: 250 MG, UID/QD
     Route: 048
     Dates: start: 20101004, end: 20110529
  17. DEPAKENE-R [Suspect]
     Indication: EPILEPSY
     Dosage: 300 MG, BID
     Route: 048
     Dates: start: 20110510, end: 20110806
  18. ALEVIATIN [Suspect]
     Indication: CONVULSION
     Dosage: 75 MG, BID
     Route: 048
     Dates: start: 20110524, end: 20110526
  19. ALEVIATIN [Suspect]
     Dosage: 200 MG, UNKNOWN/D
     Route: 048
     Dates: start: 20110527
  20. DIAZEPAM [Concomitant]
     Indication: EPILEPSY
     Dosage: UNK
     Route: 065
     Dates: start: 20110501

REACTIONS (3)
  - Renal impairment [Not Recovered/Not Resolved]
  - Epilepsy [Not Recovered/Not Resolved]
  - Decreased appetite [Recovering/Resolving]
